FAERS Safety Report 24443851 (Version 1)
Quarter: 2024Q4

REPORT INFORMATION
  Report Type: Spontaneous
  Country: FR (occurrence: FR)
  Receive Date: 20241016
  Receipt Date: 20241016
  Transmission Date: 20250114
  Serious: Yes (Hospitalization)
  Sender: PFIZER
  Company Number: None

PATIENT
  Age: 42 Year
  Sex: Male
  Weight: 140 kg

DRUGS (6)
  1. LINEZOLID [Suspect]
     Active Substance: LINEZOLID
     Indication: Meningitis bacterial
     Dosage: 600 MG, 1X/DAY
     Route: 042
     Dates: start: 20240906, end: 20240911
  2. MEROPENEM [Suspect]
     Active Substance: MEROPENEM
     Indication: Meningitis bacterial
     Dosage: 2 G EVERY 8 HOURS
     Route: 042
     Dates: start: 20240828, end: 20240909
  3. MEROPENEM [Suspect]
     Active Substance: MEROPENEM
     Dosage: 2 G EVERY 6 HOURS
     Route: 042
     Dates: start: 20240909
  4. FOSFOMYCIN [Suspect]
     Active Substance: FOSFOMYCIN
     Indication: Meningitis
     Dosage: 4 G, 1X/DAY
     Route: 042
     Dates: start: 20240906, end: 20240911
  5. URAPIDIL [Suspect]
     Active Substance: URAPIDIL
     Dosage: 50 MG, 1X/DAY
     Route: 042
     Dates: start: 20240906
  6. VANCOMYCIN [Suspect]
     Active Substance: VANCOMYCIN
     Indication: Meningitis
     Dosage: 1 G EVERY 12 HOURS
     Route: 042
     Dates: start: 20240828, end: 20240905

REACTIONS (2)
  - Atrioventricular block [Recovered/Resolved]
  - Off label use [Unknown]

NARRATIVE: CASE EVENT DATE: 20240906
